FAERS Safety Report 5268384-2 (Version None)
Quarter: 2007Q1

REPORT INFORMATION
  Report Type: 
  Country: None (occurrence: None)
  Receive Date: 20070313
  Receipt Date: 20070308
  Transmission Date: 20070707
  Serious: Yes (Other)
  Sender: FDA-Public Use
  Company Number: 230159

PATIENT
  Age: 18 Year
  Sex: Male

DRUGS (1)
  1. NUTROPIN AQ [Suspect]
     Indication: HYPOPITUITARISM
     Dosage: 0.58 ML, QD, SUBCUTANEOUS
     Route: 058

REACTIONS (3)
  - ACROMEGALY [None]
  - ARTHRITIS [None]
  - OSTEOPOROSIS [None]
